FAERS Safety Report 16457186 (Version 1)
Quarter: 2019Q3

REPORT INFORMATION
  Report Type: Spontaneous
  Country: US (occurrence: US)
  Receive Date: 20190619
  Receipt Date: 20190619
  Transmission Date: 20191004
  Serious: No
  Sender: FDA-Public Use
  Company Number: None

PATIENT
  Age: 65 Year
  Sex: Female
  Weight: 67.5 kg

DRUGS (4)
  1. MESTINON [Concomitant]
     Active Substance: PYRIDOSTIGMINE BROMIDE
  2. FIRDAPSE [Suspect]
     Active Substance: AMIFAMPRIDINE
     Indication: MYASTHENIC SYNDROME
     Dosage: ?          QUANTITY:4 TABLET(S);?
     Route: 048
     Dates: start: 20190403
  3. SUMATRIPTAN. [Concomitant]
     Active Substance: SUMATRIPTAN
  4. SUDAFED [Concomitant]
     Active Substance: PSEUDOEPHEDRINE HYDROCHLORIDE

REACTIONS (6)
  - Gait disturbance [None]
  - Balance disorder [None]
  - Drug ineffective [None]
  - Malaise [None]
  - Asthenia [None]
  - Product substitution issue [None]

NARRATIVE: CASE EVENT DATE: 20190403
